FAERS Safety Report 5814954-X (Version None)
Quarter: 2008Q3

REPORT INFORMATION
  Report Type: 
  Country: None (occurrence: None)
  Receive Date: 20080718
  Receipt Date: 20080711
  Transmission Date: 20090109
  Serious: Yes (Other)
  Sender: FDA-Public Use
  Company Number: PHEH2008US06213

PATIENT
  Age: 88 Year
  Sex: Female

DRUGS (10)
  1. ENABLEX [Suspect]
  2. CALCIUM CARBONATE W/VITAMIN D NOS [Concomitant]
  3. SIMVASTATIN [Concomitant]
     Dosage: 40 MG, UNK
  4. DOCUSATE SODIUM [Concomitant]
     Dosage: 100 MG, UNK
  5. ASPIRIN [Concomitant]
     Dosage: 81 MG, UNK
  6. BISOPROLOL FUMARATE W/HYDROCHLOROTHIAZIDE [Concomitant]
     Dosage: 5/6.25 MG, QD
  7. ACTONEL [Concomitant]
  8. FELODIPINE [Concomitant]
  9. METAMUCIL [Concomitant]
  10. STOOL SOFTENER [Concomitant]
     Dosage: TWO IN THE EVENING

REACTIONS (2)
  - GLAUCOMA [None]
  - POLLAKIURIA [None]
